FAERS Safety Report 6240125-1 (Version None)
Quarter: 2009Q2

REPORT INFORMATION
  Report Type: 
  Country: None (occurrence: None)
  Receive Date: 20090618
  Receipt Date: 20090618
  Transmission Date: 20091009
  Serious: No
  Sender: FDA-Public Use
  Company Number: None

PATIENT
  Age: 40 Year
  Sex: Male
  Weight: 120.2032 kg

DRUGS (1)
  1. NASONEX [Suspect]
     Indication: INFLUENZA
     Dosage: 100MG PER METERED DOSE TWICE DAILY NASAL
     Route: 045
     Dates: start: 20090516, end: 20090521

REACTIONS (2)
  - AGEUSIA [None]
  - ANOSMIA [None]
